FAERS Safety Report 11517586 (Version 1)
Quarter: 2015Q3

REPORT INFORMATION
  Report Type: Spontaneous
  Country: CA (occurrence: CA)
  Receive Date: 20150917
  Receipt Date: 20150917
  Transmission Date: 20151125
  Serious: Yes (Other)
  Sender: FDA-Public Use
  Company Number: CA-TEVA-587510USA

PATIENT
  Age: 88 Year
  Sex: Male
  Weight: 61.29 kg

DRUGS (3)
  1. RATIO-PREDNISOLONE [Suspect]
     Active Substance: PREDNISOLONE
     Indication: VIRAL INFECTION
  2. VIGAMOX [Concomitant]
     Active Substance: MOXIFLOXACIN HYDROCHLORIDE
     Dosage: 2 PERCENT DAILY; 1 DROP 4 TIMES A DAY IN THE LEFT EYE
     Route: 047
  3. RATIO-PREDNISOLONE [Suspect]
     Active Substance: PREDNISOLONE
     Indication: HERPES OPHTHALMIC
     Dosage: 4 PERCENT DAILY; 1 DROP FOUR TIMES PER DAY ON LEFT EYE
     Route: 047
     Dates: start: 20140116, end: 20150729

REACTIONS (6)
  - Corneal perforation [Unknown]
  - Glaucoma [Not Recovered/Not Resolved]
  - Skin atrophy [Unknown]
  - Macular degeneration [Unknown]
  - Ocular hyperaemia [Unknown]
  - Ulcerative keratitis [Unknown]

NARRATIVE: CASE EVENT DATE: 201507
